FAERS Safety Report 22637847 (Version 1)
Quarter: 2023Q2

REPORT INFORMATION
  Report Type: Report from Study
  Country: US (occurrence: US)
  Receive Date: 20230626
  Receipt Date: 20230626
  Transmission Date: 20230721
  Serious: Yes (Other)
  Sender: FDA-Public Use
  Company Number: US-ABBVIE-5301783

PATIENT

DRUGS (21)
  1. VENCLEXTA [Suspect]
     Active Substance: VENETOCLAX
     Indication: Myelodysplastic syndrome
     Dosage: FORM STRENGTH: 100 MILLIGRAM
     Route: 048
  2. TERBINAFINE [Concomitant]
     Active Substance: TERBINAFINE
     Indication: Product used for unknown indication
     Route: 048
  3. PANTOPRAZOLE [Concomitant]
     Active Substance: PANTOPRAZOLE
     Indication: Product used for unknown indication
  4. TOPIRAMATE [Concomitant]
     Active Substance: TOPIRAMATE
     Indication: Product used for unknown indication
     Route: 048
  5. TRELEGY ELLIPTA [Concomitant]
     Active Substance: FLUTICASONE FUROATE\UMECLIDINIUM BROMIDE\VILANTEROL TRIFENATATE
     Indication: Product used for unknown indication
     Route: 055
  6. QUETIAPINE [Concomitant]
     Active Substance: QUETIAPINE
     Indication: Product used for unknown indication
     Dosage: FORM STRENGTH: 300 MILLIGRAM?FREQUENCY TEXT: EVERY DAY BEFORE SLEEP
     Route: 048
  7. QUETIAPINE [Concomitant]
     Active Substance: QUETIAPINE
     Indication: Product used for unknown indication
     Dosage: FORM STRENGTH: 300 MILLIGRAM?FREQUENCY TEXT: EVERY DAY BEFORE SLEEP
     Route: 048
  8. SERTRALINE [Concomitant]
     Active Substance: SERTRALINE HYDROCHLORIDE
     Indication: Product used for unknown indication
  9. PROAIR HFA [Concomitant]
     Active Substance: ALBUTEROL SULFATE
     Indication: Product used for unknown indication
     Dosage: FREQUENCY TEXT: 2 PUFFS INHALATION EVERY 6 HOURS PRN
     Route: 055
  10. CYCLOBENZAPRINE [Concomitant]
     Active Substance: CYCLOBENZAPRINE
     Indication: Muscle spasms
     Dosage: FREQUENCY TEXT:  3 TIMES A DAY IF NEEDED
     Route: 048
  11. DACOGEN [Concomitant]
     Active Substance: DECITABINE
     Indication: Product used for unknown indication
     Route: 042
     Dates: start: 20230324
  12. DACOGEN [Concomitant]
     Active Substance: DECITABINE
     Indication: Product used for unknown indication
     Route: 042
     Dates: start: 20230322
  13. DACOGEN [Concomitant]
     Active Substance: DECITABINE
     Indication: Product used for unknown indication
     Route: 042
     Dates: start: 20230323
  14. DACOGEN [Concomitant]
     Active Substance: DECITABINE
     Indication: Product used for unknown indication
     Route: 042
     Dates: start: 20230320
  15. DACOGEN [Concomitant]
     Active Substance: DECITABINE
     Indication: Product used for unknown indication
     Route: 042
     Dates: start: 20230321
  16. LYRICA [Concomitant]
     Active Substance: PREGABALIN
     Indication: Product used for unknown indication
     Dosage: FORM STRENGTH: 125 MILLIGRAM
     Dates: start: 20230420
  17. ALBUTEROL\IPRATROPIUM [Concomitant]
     Active Substance: ALBUTEROL\IPRATROPIUM
     Indication: Product used for unknown indication
     Dosage: FREQUENCY TEXT: 2 PUFFS INHALATION EVERY 6 HOURS PRN
  18. ALBUTEROL\IPRATROPIUM [Concomitant]
     Active Substance: ALBUTEROL\IPRATROPIUM
     Indication: Product used for unknown indication
     Dosage: FREQUENCY TEXT: 2 PUFFS INHALATION EVERY 6 HOURS PRN
     Route: 055
  19. ACETAMINOPHEN\HYDROCODONE [Concomitant]
     Active Substance: ACETAMINOPHEN\HYDROCODONE
     Indication: Product used for unknown indication
     Route: 048
  20. SIMVASTATIN [Concomitant]
     Active Substance: SIMVASTATIN
     Indication: Product used for unknown indication
     Route: 048
  21. FENOFIBRATE [Concomitant]
     Active Substance: FENOFIBRATE
     Indication: Product used for unknown indication
     Route: 048

REACTIONS (2)
  - Transfusion [Unknown]
  - Off label use [Unknown]
